FAERS Safety Report 23224510 (Version 1)
Quarter: 2023Q4

REPORT INFORMATION
  Report Type: Spontaneous
  Country: ES (occurrence: ES)
  Receive Date: 20231124
  Receipt Date: 20231124
  Transmission Date: 20240110
  Serious: Yes (Other)
  Sender: FDA-Public Use
  Company Number: None

PATIENT
  Age: 56 Year
  Sex: Female
  Weight: 59 kg

DRUGS (4)
  1. AJOVY [Suspect]
     Active Substance: FREMANEZUMAB-VFRM
     Indication: Migraine
     Dosage: 225MG/ 1 TIME MONTH   , 1 PRE-FILLED PEN     , FORM STRENGTH : 225 MG  , UNIT DOSE : 225 MG  , FREQ
     Route: 065
     Dates: start: 20231023, end: 20231023
  2. CRESTOR [Concomitant]
     Active Substance: ROSUVASTATIN CALCIUM
     Indication: Blood cholesterol increased
     Dosage: 1 DAY   , 28 TABLETS
  3. ESOMEPRAZOLE [Concomitant]
     Active Substance: ESOMEPRAZOLE
     Indication: Hiatus hernia
     Dosage: 1 DAY  , FORM STRENGTH : 40 MG , 28 TABLETS
  4. MAXALT MAX [Concomitant]
     Indication: Migraine
     Dosage: 6 LYOPHILIZED , FORM STRENGTH : 10 MG

REACTIONS (4)
  - Abdominal pain [Recovering/Resolving]
  - Dyspepsia [Recovered/Resolved]
  - Flatulence [Recovered/Resolved]
  - Nausea [Recovered/Resolved]

NARRATIVE: CASE EVENT DATE: 20231023
